FAERS Safety Report 21489554 (Version 2)
Quarter: 2022Q4

REPORT INFORMATION
  Report Type: Spontaneous
  Country: US (occurrence: US)
  Receive Date: 20221021
  Receipt Date: 20221031
  Transmission Date: 20230113
  Serious: No
  Sender: FDA-Public Use
  Company Number: US-ALXN-A202212805

PATIENT
  Age: 54 Year
  Sex: Female

DRUGS (1)
  1. ULTOMIRIS [Suspect]
     Active Substance: RAVULIZUMAB-CWVZ
     Indication: Myasthenia gravis
     Dosage: UNK
     Route: 065

REACTIONS (8)
  - Blood pressure increased [Unknown]
  - Hyperhidrosis [Unknown]
  - Condition aggravated [Unknown]
  - Pain in extremity [Unknown]
  - Tremor [Unknown]
  - Body temperature increased [Unknown]
  - Muscle spasms [Unknown]
  - Nausea [Unknown]
